FAERS Safety Report 7409972-4 (Version None)
Quarter: 2011Q2

REPORT INFORMATION
  Report Type: 
  Country: None (occurrence: None)
  Receive Date: 20110412
  Receipt Date: 20110331
  Transmission Date: 20111010
  Serious: Yes (Other)
  Sender: FDA-Public Use
  Company Number: PHHY2011FR27330

PATIENT
  Age: 47 Year
  Sex: Male

DRUGS (5)
  1. CARDENSIEL [Concomitant]
     Dosage: 5 MG, UNK
  2. RASILEZ HCT [Suspect]
     Dosage: 300/25 MG
     Dates: start: 20110101
  3. FLECAINE [Concomitant]
     Dosage: 50 MG, UNK
  4. ASPEGIC 325 [Concomitant]
  5. PREVISCAN [Concomitant]

REACTIONS (1)
  - LIVER DISORDER [None]
